FAERS Safety Report 5132617-3 (Version None)
Quarter: 2006Q4

REPORT INFORMATION
  Report Type: 
  Country: None (occurrence: None)
  Receive Date: 20061017
  Receipt Date: 20061006
  Transmission Date: 20070319
  Serious: Yes (Life-Threatening, Hospitalization)
  Sender: FDA-Public Use
  Company Number: GXKR2006GB06250

PATIENT
  Age: 21 Year
  Sex: Female

DRUGS (3)
  1. CITALOPRAM [Suspect]
     Dosage: 1.6 G,
  2. ACETAMINOPHEN W/ CODEINE [Suspect]
  3. VENLAFAXINE HCL [Suspect]
     Dosage: 1.05 G,

REACTIONS (11)
  - BLOOD CREATINE PHOSPHOKINASE INCREASED [None]
  - ELECTROCARDIOGRAM QRS COMPLEX PROLONGED [None]
  - ELECTROCARDIOGRAM QT CORRECTED INTERVAL [None]
  - GRAND MAL CONVULSION [None]
  - HYPOXIA [None]
  - LOSS OF CONSCIOUSNESS [None]
  - MULTIPLE DRUG OVERDOSE INTENTIONAL [None]
  - PYREXIA [None]
  - SINUS TACHYCARDIA [None]
  - SKIN LACERATION [None]
  - WHITE BLOOD CELL COUNT INCREASED [None]
